FAERS Safety Report 11238208 (Version 2)
Quarter: 2015Q3

REPORT INFORMATION
  Report Type: Spontaneous
  Country: CN (occurrence: CN)
  Receive Date: 20150703
  Receipt Date: 20150708
  Transmission Date: 20151125
  Serious: Yes (Other)
  Sender: FDA-Public Use
  Company Number: CN-GLAXOSMITHKLINE INC.-CN2015GSK095421

PATIENT
  Age: 5 Year
  Sex: Male

DRUGS (2)
  1. HEPTODIN [Suspect]
     Active Substance: LAMIVUDINE
     Dosage: UNK, 1TABLET
  2. HEPTODIN [Suspect]
     Active Substance: LAMIVUDINE
     Indication: HEPATITIS B
     Dosage: UNK, 3/5 TABLETS DAILY
     Route: 048
     Dates: start: 2012

REACTIONS (6)
  - Off label use [Unknown]
  - Drug ineffective [Unknown]
  - Dyspnoea [Not Recovered/Not Resolved]
  - Cough [Not Recovered/Not Resolved]
  - Drug administration error [Unknown]
  - Hepatitis B [Recovering/Resolving]

NARRATIVE: CASE EVENT DATE: 2012
